FAERS Safety Report 18691367 (Version 44)
Quarter: 2024Q3

REPORT INFORMATION
  Report Type: Report from Study
  Country: CO (occurrence: CO)
  Receive Date: 20210101
  Receipt Date: 20240820
  Transmission Date: 20241016
  Serious: Yes (Hospitalization, Other)
  Sender: TAKEDA
  Company Number: CO-TAKEDA-CO202025830

PATIENT
  Age: 18 Year
  Sex: Female
  Weight: 59 kg

DRUGS (4)
  1. ICATIBANT [Suspect]
     Active Substance: ICATIBANT ACETATE
     Indication: Hereditary angioedema
     Dosage: 1 DOSAGE FORM, Q6HR
     Route: 058
     Dates: start: 20170308
  2. ICATIBANT [Suspect]
     Active Substance: ICATIBANT ACETATE
     Indication: Hereditary angioedema
     Dosage: 1 DOSAGE FORM, Q6HR
     Route: 058
     Dates: start: 20170308
  3. ICATIBANT [Suspect]
     Active Substance: ICATIBANT ACETATE
     Dosage: 1 DOSAGE FORM
     Route: 058
  4. ICATIBANT [Suspect]
     Active Substance: ICATIBANT ACETATE
     Dosage: 1 DOSAGE FORM
     Route: 058

REACTIONS (44)
  - Bacterial infection [Recovering/Resolving]
  - Osteomyelitis [Unknown]
  - Road traffic accident [Recovered/Resolved]
  - Injury [Recovering/Resolving]
  - Localised infection [Recovering/Resolving]
  - Lower limb fracture [Recovering/Resolving]
  - Upper limb fracture [Recovering/Resolving]
  - Haemorrhage [Unknown]
  - Mass [Unknown]
  - Papule [Unknown]
  - Bite [Unknown]
  - Product prescribing error [Unknown]
  - Inflammation [Recovering/Resolving]
  - Myalgia [Recovering/Resolving]
  - Limb injury [Not Recovered/Not Resolved]
  - Polymenorrhoea [Not Recovered/Not Resolved]
  - Pain in jaw [Not Recovered/Not Resolved]
  - Depressed mood [Not Recovered/Not Resolved]
  - Discharge [Recovering/Resolving]
  - Weight increased [Unknown]
  - Cough [Recovering/Resolving]
  - Fall [Unknown]
  - Gait disturbance [Unknown]
  - Arthritis [Unknown]
  - Muscular weakness [Unknown]
  - Cyanosis [Unknown]
  - Skin irritation [Recovering/Resolving]
  - Weight decreased [Unknown]
  - Joint injury [Not Recovered/Not Resolved]
  - Pain [Unknown]
  - Uterine enlargement [Unknown]
  - Pain in extremity [Unknown]
  - Influenza [Not Recovered/Not Resolved]
  - Malaise [Not Recovered/Not Resolved]
  - Haematoma [Unknown]
  - Emotional distress [Unknown]
  - Heavy menstrual bleeding [Unknown]
  - Stress [Unknown]
  - Mood swings [Unknown]
  - Poor venous access [Recovered/Resolved]
  - Product availability issue [Recovering/Resolving]
  - Nasal congestion [Recovering/Resolving]
  - Pyrexia [Recovering/Resolving]
  - Headache [Unknown]

NARRATIVE: CASE EVENT DATE: 20200802
